FAERS Safety Report 16133014 (Version 1)
Quarter: 2019Q2

REPORT INFORMATION
  Report Type: Spontaneous
  Country: US (occurrence: US)
  Receive Date: 20190328
  Receipt Date: 20190328
  Transmission Date: 20190711
  Serious: Yes (Disabling)
  Sender: FDA-Public Use
  Company Number: None

PATIENT
  Age: 24 Year
  Sex: Male
  Weight: 115.2 kg

DRUGS (1)
  1. INVEGA SUSTENNA [Suspect]
     Active Substance: PALIPERIDONE PALMITATE
     Indication: SCHIZOPHRENIA
     Dosage: ?          QUANTITY:1 INJECTION(S);OTHER FREQUENCY:1 PER MONTH;?
     Route: 058
     Dates: start: 20190225

REACTIONS (10)
  - Aphasia [None]
  - Derealisation [None]
  - Intentional self-injury [None]
  - Paranoia [None]
  - Hallucination, visual [None]
  - Hallucination, auditory [None]
  - Swelling [None]
  - Headache [None]
  - Screaming [None]
  - Cognitive disorder [None]

NARRATIVE: CASE EVENT DATE: 20190327
